FAERS Safety Report 16384915 (Version 1)
Quarter: 2019Q2

REPORT INFORMATION
  Report Type: Spontaneous
  Country: US (occurrence: US)
  Receive Date: 20190603
  Receipt Date: 20190603
  Transmission Date: 20190711
  Serious: Yes (Other)
  Sender: FDA-Public Use
  Company Number: US-TEVA-2019-US-1059574

PATIENT
  Sex: Female

DRUGS (1)
  1. PROAIR HFA [Suspect]
     Active Substance: ALBUTEROL SULFATE
     Route: 065

REACTIONS (7)
  - Feeling jittery [Unknown]
  - Cough [Unknown]
  - Pharyngeal swelling [Unknown]
  - Wheezing [Unknown]
  - Oxygen saturation decreased [Unknown]
  - Headache [Unknown]
  - Nausea [Unknown]
